FAERS Safety Report 4796975-1 (Version None)
Quarter: 2005Q4

REPORT INFORMATION
  Report Type: 
  Country: None (occurrence: None)
  Receive Date: 20051011
  Receipt Date: 20051011
  Transmission Date: 20060501
  Serious: No
  Sender: FDA-Public Use
  Company Number: None

PATIENT
  Age: 57 Year
  Sex: Female

DRUGS (1)
  1. PHENERGAN [Suspect]
     Indication: VOMITING
     Dosage: 12.5 MG IV
     Route: 030
     Dates: start: 20050611, end: 20050611

REACTIONS (5)
  - CONTUSION [None]
  - ERYTHEMA [None]
  - INFUSION RELATED REACTION [None]
  - INFUSION SITE SWELLING [None]
  - SKIN DISCOLOURATION [None]
